FAERS Safety Report 24110133 (Version 1)
Quarter: 2024Q3

REPORT INFORMATION
  Report Type: Spontaneous
  Country: US (occurrence: US)
  Receive Date: 20240718
  Receipt Date: 20240718
  Transmission Date: 20241016
  Serious: No
  Sender: DR REDDYS
  Company Number: US-DRL-USA-LIT/USA/24/0010273

PATIENT
  Age: 71 Year
  Sex: Male

DRUGS (5)
  1. COLCHICINE [Suspect]
     Active Substance: COLCHICINE
     Indication: VEXAS syndrome
  2. DAPSONE [Suspect]
     Active Substance: DAPSONE
     Indication: VEXAS syndrome
  3. MYCOPHENOLATE MOFETIL [Concomitant]
     Active Substance: MYCOPHENOLATE MOFETIL
     Indication: VEXAS syndrome
  4. INDOMETHACIN [Concomitant]
     Active Substance: INDOMETHACIN
     Indication: VEXAS syndrome
  5. ADALIMUMAB [Concomitant]
     Active Substance: ADALIMUMAB\ISOPROPYL ALCOHOL
     Indication: VEXAS syndrome

REACTIONS (1)
  - Drug ineffective for unapproved indication [Unknown]
